FAERS Safety Report 4917441-6 (Version None)
Quarter: 2006Q1

REPORT INFORMATION
  Report Type: 
  Country: None (occurrence: None)
  Receive Date: 20060216
  Receipt Date: 20060216
  Transmission Date: 20060701
  Serious: Yes (Hospitalization, Other)
  Sender: FDA-Public Use
  Company Number: None

PATIENT
  Sex: Female
  Weight: 133 kg

DRUGS (4)
  1. ZOLADEX [Suspect]
     Indication: BREAST CANCER
     Dosage: 18.75 MG
     Dates: end: 20060131
  2. BENICAR [Concomitant]
  3. COREG [Concomitant]
  4. EFFEXOR [Concomitant]

REACTIONS (4)
  - CELLULITIS [None]
  - PYREXIA [None]
  - URINE ANALYSIS ABNORMAL [None]
  - WHITE BLOOD CELLS URINE POSITIVE [None]
